FAERS Safety Report 9953592 (Version 2)
Quarter: 2014Q1

REPORT INFORMATION
  Report Type: Spontaneous
  Country: US (occurrence: US)
  Receive Date: 20140304
  Receipt Date: 20140314
  Transmission Date: 20141002
  Serious: Yes (Disabling, Other)
  Sender: FDA-Public Use
  Company Number: US-EISAI INC-AP356-00484-SPO-US

PATIENT
  Age: 62 Year
  Sex: Female
  Weight: 68 kg

DRUGS (1)
  1. BELVIQ (LORCASERIN HYDROCHLORIDE) [Suspect]
     Indication: OBESITY
     Route: 048
     Dates: start: 20140208, end: 20140214

REACTIONS (7)
  - Hypotension [Recovering/Resolving]
  - Dysarthria [Recovering/Resolving]
  - Euphoric mood [Recovering/Resolving]
  - Bradyphrenia [Recovering/Resolving]
  - Dry mouth [Recovering/Resolving]
  - Fatigue [Recovering/Resolving]
  - Headache [Recovering/Resolving]
